FAERS Safety Report 9645552 (Version 2)
Quarter: 2013Q4

REPORT INFORMATION
  Report Type: Spontaneous
  Country: JP (occurrence: JP)
  Receive Date: 20131025
  Receipt Date: 20131107
  Transmission Date: 20140711
  Serious: Yes (Other)
  Sender: FDA-Public Use
  Company Number: JP-SA-2013SA108247

PATIENT
  Age: 81 Year
  Sex: Male

DRUGS (1)
  1. FLUDARA [Suspect]
     Indication: PRODUCT USED FOR UNKNOWN INDICATION
     Dosage: FLUDARA INJECTION 50 MG
     Route: 042

REACTIONS (1)
  - Cardiac failure [Unknown]
